FAERS Safety Report 15927851 (Version 1)
Quarter: 2019Q1

REPORT INFORMATION
  Report Type: Spontaneous
  Country: ES (occurrence: ES)
  Receive Date: 20190206
  Receipt Date: 20190206
  Transmission Date: 20190417
  Serious: Yes (Life-Threatening, Hospitalization, Other)
  Sender: FDA-Public Use
  Company Number: ES-BAYER-200611489GDS

PATIENT
  Age: 65 Year
  Sex: Male

DRUGS (2)
  1. ADIRO [Suspect]
     Active Substance: ASPIRIN
     Indication: CARDIAC DISORDER
     Route: 048
     Dates: start: 200502, end: 20051114
  2. SINTROM [Interacting]
     Active Substance: ACENOCOUMAROL
     Indication: CARDIAC DISORDER
     Dosage: 4 MG
     Route: 048
     Dates: start: 200506

REACTIONS (2)
  - Melaena [Recovered/Resolved]
  - Nausea [Recovered/Resolved]

NARRATIVE: CASE EVENT DATE: 20051114
